FAERS Safety Report 8924978 (Version 1)
Quarter: 2012Q4

REPORT INFORMATION
  Report Type: Spontaneous
  Country: FR (occurrence: None)
  Receive Date: 20121116
  Receipt Date: 20121116
  Transmission Date: 20130627
  Serious: Yes (Life-Threatening, Hospitalization)
  Sender: FDA-Public Use
  Company Number: 2012CP000145

PATIENT
  Age: 23 Year
  Sex: Female

DRUGS (4)
  1. PERFALGAN [Suspect]
     Indication: PYREXIA
     Route: 042
     Dates: start: 20120304
  2. TEGRETOL [Suspect]
     Indication: EPILEPSY
     Route: 048
     Dates: start: 20120302, end: 20120303
  3. FLUIMUCIL [Suspect]
  4. ACICLOVIR [Suspect]

REACTIONS (18)
  - Hepatitis fulminant [None]
  - Pancreatitis [None]
  - Rash morbilliform [None]
  - Face oedema [None]
  - Lymphadenopathy [None]
  - Lymphadenopathy [None]
  - Hyperthermia [None]
  - Hypotension [None]
  - Prothrombin time prolonged [None]
  - Hepatocellular injury [None]
  - Laboratory test interference [None]
  - Influenza A virus test positive [None]
  - Skin lesion [None]
  - Skin exfoliation [None]
  - Dry skin [None]
  - Urticaria [None]
  - Toxic skin eruption [None]
  - Drug reaction with eosinophilia and systemic symptoms [None]
